FAERS Safety Report 9050298 (Version 2)
Quarter: 2013Q1

REPORT INFORMATION
  Report Type: Spontaneous
  Country: DE (occurrence: DE)
  Receive Date: 20130205
  Receipt Date: 20130208
  Transmission Date: 20140127
  Serious: Yes (Other)
  Sender: FDA-Public Use
  Company Number: PHHY2013DE009764

PATIENT
  Sex: Female

DRUGS (1)
  1. TEGRETAL [Suspect]
     Indication: EPILEPSY

REACTIONS (2)
  - Concomitant disease progression [Unknown]
  - Therapeutic response decreased [Unknown]
